FAERS Safety Report 7753941-1 (Version None)
Quarter: 2011Q3

REPORT INFORMATION
  Report Type: 
  Country: None (occurrence: None)
  Receive Date: 20110913
  Receipt Date: 20110829
  Transmission Date: 20111222
  Serious: Yes (Hospitalization)
  Sender: FDA-Public Use
  Company Number: 2011AP001836

PATIENT
  Age: 11 Year
  Sex: Male

DRUGS (1)
  1. LEVETIRACETAM [Suspect]
     Indication: GRAND MAL CONVULSION
     Dosage: 25 MG/KG;QD, 40 MG/KG;QD

REACTIONS (5)
  - CONVULSION [None]
  - DRUG INEFFECTIVE [None]
  - ATTENTION DEFICIT/HYPERACTIVITY DISORDER [None]
  - MYOCLONUS [None]
  - INSOMNIA [None]
